FAERS Safety Report 7392603-X (Version None)
Quarter: 2011Q2

REPORT INFORMATION
  Report Type: 
  Country: None (occurrence: None)
  Receive Date: 20110404
  Receipt Date: 20110311
  Transmission Date: 20111010
  Serious: No
  Sender: FDA-Public Use
  Company Number: US-B.I. PHARMACEUTICALS,INC./RIDGEFIELD-2011-BP-07719BP

PATIENT
  Age: 49 Year
  Sex: Female

DRUGS (3)
  1. ZANTAC [Suspect]
     Indication: DYSPEPSIA
     Route: 048
     Dates: start: 20050101
  2. IRON [Concomitant]
     Indication: IRON DEFICIENCY
  3. BIRTH CONTROL [Concomitant]
     Indication: ORAL CONTRACEPTION

REACTIONS (1)
  - DYSPEPSIA [None]
